FAERS Safety Report 20724313 (Version 1)
Quarter: 2022Q2

REPORT INFORMATION
  Report Type: Spontaneous
  Country: DE (occurrence: DE)
  Receive Date: 20220419
  Receipt Date: 20220419
  Transmission Date: 20220721
  Serious: Yes (Hospitalization, Other)
  Sender: FDA-Public Use
  Company Number: DE-BoehringerIngelheim-2022-BI-164883

PATIENT
  Age: 61 Year
  Sex: Female

DRUGS (1)
  1. NINTEDANIB [Suspect]
     Active Substance: NINTEDANIB
     Indication: Rheumatoid arthritis-associated interstitial lung disease
     Route: 048
     Dates: start: 202007

REACTIONS (2)
  - Condition aggravated [Unknown]
  - Lung diffusion disorder [Unknown]

NARRATIVE: CASE EVENT DATE: 20211001
